FAERS Safety Report 6385431-5 (Version None)
Quarter: 2009Q4

REPORT INFORMATION
  Report Type: 
  Country: None (occurrence: None)
  Receive Date: 20091002
  Receipt Date: 20080902
  Transmission Date: 20100525
  Serious: No
  Sender: FDA-Public Use
  Company Number: US-ASTRAZENECA-2008UW17923

PATIENT
  Age: 78 Year
  Sex: Female

DRUGS (1)
  1. ARIMIDEX [Suspect]
     Indication: BREAST CANCER FEMALE
     Route: 048
     Dates: start: 20020101

REACTIONS (4)
  - BREAST CANCER METASTATIC [None]
  - ILL-DEFINED DISORDER [None]
  - MALAISE [None]
  - TREMOR [None]
